FAERS Safety Report 6795925-6 (Version None)
Quarter: 2010Q2

REPORT INFORMATION
  Report Type: 
  Country: None (occurrence: None)
  Receive Date: 20100625
  Receipt Date: 20100622
  Transmission Date: 20101027
  Serious: Yes (Hospitalization)
  Sender: FDA-Public Use
  Company Number: B0657762A

PATIENT
  Sex: Female

DRUGS (20)
  1. AUGMENTIN '125' [Suspect]
     Indication: PROPHYLAXIS
     Dosage: 2G PER DAY
     Route: 042
     Dates: start: 20100115, end: 20100115
  2. ATRACURIUM [Suspect]
     Route: 042
     Dates: start: 20100115, end: 20100115
  3. PROPOFOL [Suspect]
     Route: 042
     Dates: start: 20100115, end: 20100115
  4. SUFENTA PRESERVATIVE FREE [Suspect]
     Route: 042
     Dates: start: 20100115, end: 20100115
  5. SUPRANE [Suspect]
     Route: 055
     Dates: start: 20100115, end: 20100115
  6. NAROPIN [Suspect]
     Dosage: 15MG PER DAY
     Route: 026
     Dates: start: 20100115, end: 20100115
  7. BETADINE [Suspect]
     Indication: PREOPERATIVE CARE
     Route: 061
     Dates: start: 20100114, end: 20100115
  8. BETADINE [Suspect]
     Route: 067
     Dates: start: 20100115, end: 20100115
  9. NORMACOL [Suspect]
     Indication: PREMEDICATION
     Route: 054
     Dates: start: 20100114, end: 20100114
  10. PERFALGAN [Suspect]
     Indication: DRUG USE FOR UNKNOWN INDICATION
     Dosage: 1G THREE TIMES PER DAY
     Route: 042
     Dates: start: 20100115, end: 20100117
  11. ACUPAN [Suspect]
     Route: 042
     Dates: start: 20100115, end: 20100117
  12. DROPERIDOL [Suspect]
     Dosage: 1.25MG SINGLE DOSE
     Route: 042
     Dates: start: 20100115, end: 20100115
  13. EPHEDRINE [Suspect]
     Route: 042
     Dates: start: 20100115, end: 20100115
  14. ATROPINE [Suspect]
     Dosage: 1MG SINGLE DOSE
     Route: 042
     Dates: start: 20100115, end: 20100115
  15. FLUDEX [Concomitant]
     Route: 065
  16. LIPANOR [Concomitant]
     Route: 065
  17. ARTOTEC [Concomitant]
     Route: 065
     Dates: end: 20100101
  18. RINGER'S [Concomitant]
     Route: 065
     Dates: start: 20100115
  19. PHYSIOLOGICAL SERUM [Concomitant]
     Route: 065
     Dates: start: 20100115
  20. NEURONTIN [Concomitant]
     Indication: PREMEDICATION
     Dosage: 600MG PER DAY
     Route: 065
     Dates: start: 20100114, end: 20100115

REACTIONS (4)
  - BLOOD CREATININE INCREASED [None]
  - OLIGURIA [None]
  - PRODUCT QUALITY ISSUE [None]
  - RENAL FAILURE ACUTE [None]
